FAERS Safety Report 14241923 (Version 1)
Quarter: 2017Q4

REPORT INFORMATION
  Report Type: Report from Study
  Country: None (occurrence: ES)
  Receive Date: 20171201
  Receipt Date: 20171201
  Transmission Date: 20180321
  Serious: Yes (Death)
  Sender: FDA-Public Use
  Company Number: ES-ABBVIE-17K-144-2157437-00

PATIENT
  Age: 81 Year
  Sex: Female

DRUGS (1)
  1. DUODOPA [Suspect]
     Active Substance: CARBIDOPA\LEVODOPA
     Indication: PARKINSON^S DISEASE
     Route: 050
     Dates: start: 20150325

REACTIONS (14)
  - Diarrhoea [Recovering/Resolving]
  - Constipation [Recovering/Resolving]
  - Proctalgia [Unknown]
  - Decreased appetite [Unknown]
  - Gastroenteritis [Recovering/Resolving]
  - Nausea [Recovering/Resolving]
  - Respiratory failure [Fatal]
  - Sepsis [Fatal]
  - Discomfort [Unknown]
  - Multiple organ dysfunction syndrome [Fatal]
  - Colitis [Recovering/Resolving]
  - Acute kidney injury [Fatal]
  - Metabolic acidosis [Fatal]
  - Intestinal obstruction [Fatal]

NARRATIVE: CASE EVENT DATE: 2017
